FAERS Safety Report 6939589-7 (Version None)
Quarter: 2010Q3

REPORT INFORMATION
  Report Type: 
  Country: None (occurrence: None)
  Receive Date: 20100820
  Receipt Date: 20100805
  Transmission Date: 20110219
  Serious: Yes (Hospitalization)
  Sender: FDA-Public Use
  Company Number: 1000015717

PATIENT
  Sex: Female
  Weight: 2.26 kg

DRUGS (3)
  1. ESCITALOPRAM [Suspect]
     Dosage: 20MG, (20MG, 1 IN 1 D), TRANSPLECENTAL
     Route: 064
     Dates: start: 20090701, end: 20100312
  2. PAROXETINE HCL [Suspect]
     Dosage: TRANSPLACENTAL
     Route: 064
     Dates: end: 20090701
  3. SYNTOCINON [Concomitant]

REACTIONS (29)
  - AMMONIA INCREASED [None]
  - COUGH [None]
  - CYANOSIS NEONATAL [None]
  - DEHYDRATION [None]
  - EXTENSOR PLANTAR RESPONSE [None]
  - EYE MOVEMENT DISORDER [None]
  - FEEDING DISORDER NEONATAL [None]
  - FONTANELLE DEPRESSED [None]
  - HAEMANGIOMA [None]
  - HAEMOGLOBIN DECREASED [None]
  - HYPERTONIA [None]
  - HYPOPHAGIA [None]
  - HYPOREFLEXIA [None]
  - HYPOTONIA [None]
  - LEUKOPLAKIA ORAL [None]
  - MALAISE [None]
  - MALNUTRITION [None]
  - MATERNAL DRUGS AFFECTING FOETUS [None]
  - MUCOSAL DRYNESS [None]
  - MUSCULOSKELETAL STIFFNESS [None]
  - OESOPHAGITIS [None]
  - PALATAL DISORDER [None]
  - PALLOR [None]
  - PLATELET COUNT INCREASED [None]
  - POOR SUCKING REFLEX [None]
  - REGURGITATION [None]
  - STRIDOR [None]
  - VOMITING [None]
  - WEIGHT GAIN POOR [None]
